FAERS Safety Report 19153887 (Version 1)
Quarter: 2021Q2

REPORT INFORMATION
  Report Type: Spontaneous
  Country: US (occurrence: US)
  Receive Date: 20210419
  Receipt Date: 20210419
  Transmission Date: 20210717
  Serious: Yes (Life-Threatening, Hospitalization)
  Sender: FDA-Public Use
  Company Number: US-MYLANLABS-2021M1023007

PATIENT
  Age: 65 Year
  Sex: Female

DRUGS (6)
  1. BIVALIRUDIN. [Suspect]
     Active Substance: BIVALIRUDIN
     Indication: ANTICOAGULANT THERAPY
     Dosage: AT THERAPEUTIC ACTIVATED ..
     Route: 042
  2. BIVALIRUDIN. [Suspect]
     Active Substance: BIVALIRUDIN
     Dosage: 0.25 MILLIGRAM/KILOGRAM, QH WITH THE FIRST PORTION OF...
     Route: 042
  3. HEPARIN [Concomitant]
     Active Substance: HEPARIN SODIUM
     Indication: ANTICOAGULANT THERAPY
     Dosage: 100 U/KG; BOLUS
     Route: 065
  4. NOREPINEPHRINE. [Suspect]
     Active Substance: NOREPINEPHRINE
     Indication: HAEMODYNAMIC INSTABILITY
     Dosage: 0.05 MICROGRAM/KILOGRAM, QMINUTE
     Route: 065
  5. HEPARIN [Concomitant]
     Active Substance: HEPARIN SODIUM
     Dosage: UNK UNK, TID 5000U; 3 TIMES PER DAY
     Route: 058
  6. BIVALIRUDIN. [Suspect]
     Active Substance: BIVALIRUDIN
     Dosage: 0.16 MILLIGRAM/KILOGRAM, QH ANOTHER PORTION AFTER DIAGNOSIS..
     Route: 042

REACTIONS (2)
  - Off label use [Unknown]
  - Drug ineffective [Unknown]
